FAERS Safety Report 7372380-9 (Version None)
Quarter: 2011Q1

REPORT INFORMATION
  Report Type: 
  Country: None (occurrence: None)
  Receive Date: 20110324
  Receipt Date: 20110315
  Transmission Date: 20110831
  Serious: Yes (Hospitalization)
  Sender: FDA-Public Use
  Company Number: CH-JNJFOC-20110303456

PATIENT
  Sex: Female

DRUGS (3)
  1. SIMPONI [Suspect]
     Indication: ANKYLOSING SPONDYLITIS
     Route: 058
  2. TILUR [Suspect]
     Indication: HEADACHE
     Route: 048
  3. CORTICOSTEROIDS [Suspect]
     Indication: ANKYLOSING SPONDYLITIS

REACTIONS (4)
  - MIGRAINE [None]
  - UPPER GASTROINTESTINAL HAEMORRHAGE [None]
  - HEADACHE [None]
  - HYPERTENSION [None]
